FAERS Safety Report 14251675 (Version 1)
Quarter: 2017Q4

REPORT INFORMATION
  Report Type: Spontaneous
  Country: US (occurrence: US)
  Receive Date: 20171205
  Receipt Date: 20171205
  Transmission Date: 20180321
  Serious: No
  Sender: FDA-Public Use
  Company Number: US-MISSION PHARMACAL COMPANY-2036703

PATIENT
  Age: 45 Year
  Sex: Female

DRUGS (1)
  1. THIOLA [Suspect]
     Active Substance: TIOPRONIN
     Indication: CYSTINURIA
     Route: 065
     Dates: start: 20171026

REACTIONS (4)
  - Tongue discolouration [Unknown]
  - Glossodynia [Unknown]
  - Ageusia [Unknown]
  - Nausea [Unknown]
